FAERS Safety Report 13946712 (Version 1)
Quarter: 2017Q3

REPORT INFORMATION
  Report Type: Not Available
  Country: US (occurrence: US)
  Receive Date: 20170907
  Receipt Date: 20170907
  Transmission Date: 20171128
  Serious: No
  Sender: FDA-Public Use
  Company Number: US-3M-2017-US-009282

PATIENT
  Age: 81 Year
  Sex: Female
  Weight: 68.04 kg

DRUGS (6)
  1. ATORVASTATIN [Concomitant]
     Active Substance: ATORVASTATIN
  2. PERIDEX [Suspect]
     Active Substance: CHLORHEXIDINE GLUCONATE
     Dosage: USED TWICE DAILY TO RINSE MOUTH FOR 30 SECONDS
     Route: 048
     Dates: start: 20170726, end: 20170802
  3. FISH OIL [Concomitant]
     Active Substance: FISH OIL
  4. UNSPECIFIED EYE SUPPLEMENT [Concomitant]
  5. MULTIVITAMIN [Concomitant]
     Active Substance: VITAMINS
  6. LISINOPRIL. [Concomitant]
     Active Substance: LISINOPRIL

REACTIONS (2)
  - Oral mucosal blistering [Recovered/Resolved]
  - Noninfective gingivitis [Recovering/Resolving]

NARRATIVE: CASE EVENT DATE: 20170727
